FAERS Safety Report 6070222-5 (Version None)
Quarter: 2009Q1

REPORT INFORMATION
  Report Type: 
  Country: None (occurrence: None)
  Receive Date: 20090204
  Receipt Date: 20090127
  Transmission Date: 20090719
  Serious: Yes (Hospitalization)
  Sender: FDA-Public Use
  Company Number: LTI2009A00027

PATIENT
  Age: 62 Year
  Sex: Female

DRUGS (12)
  1. LANSOPRAZOLE [Suspect]
     Indication: PROPHYLAXIS AGAINST GASTROINTESTINAL ULCER
     Dosage: ORAL
     Route: 048
     Dates: end: 20080818
  2. IBUPROFEN TABLETS [Suspect]
     Indication: BACK PAIN
     Dates: start: 20080805, end: 20080815
  3. EFFERALAGAN CODEINE (PANADEINE CO) (TABLETS) [Suspect]
     Indication: BACK PAIN
     Dosage: ORAL
     Route: 048
     Dates: start: 20080805, end: 20080815
  4. TETRAZEPAM (ALPRAZOLAM) (TABLETS) [Suspect]
     Indication: BACK PAIN
     Dosage: 1 DF (1 DF, 1 IN 1 D) ORAL
     Route: 048
     Dates: start: 20080805, end: 20080815
  5. XANAX [Suspect]
     Indication: ANXIETY
     Dosage: 0.25 MG (0.5 MG, 1 IN 1 D) ORAL
     Route: 048
     Dates: end: 20080818
  6. KARDEGIC (ACETYLSALICYLATE LYSINE) [Suspect]
     Indication: HYPERTENSION
     Dosage: 1 DF (1 DF, 1 IN 1 D) ORAL
     Route: 048
     Dates: end: 20080819
  7. KARDEGIC (ACETYLSALICYLATE LYSINE) [Suspect]
     Indication: PROPHYLAXIS
     Dosage: 1 DF (1 DF, 1 IN 1 D) ORAL
     Route: 048
     Dates: end: 20080819
  8. HYZAAR [Suspect]
     Indication: HYPERTENSION
     Dosage: 1 DF (1 DF, 1 IN 1 D) ORAL
     Route: 048
     Dates: end: 20080823
  9. HYPERIUM (RILMENIDINE) [Suspect]
     Indication: HYPERTENSION
     Dosage: 1 DF (1 DF, 1 IN 1 D) ORAL
     Route: 048
     Dates: end: 20080823
  10. CRESTOR [Suspect]
     Indication: DYSLIPIDAEMIA
     Dosage: 1 DF (1 DF, 1 IN 1 D) ORAL
     Route: 048
     Dates: end: 20080823
  11. CRESTOR [Suspect]
     Indication: HYPERTENSION
     Dosage: 1 DF (1 DF, 1 IN 1 D) ORAL
     Route: 048
     Dates: end: 20080823
  12. PROZAC [Concomitant]

REACTIONS (3)
  - BACK PAIN [None]
  - DRUG RASH WITH EOSINOPHILIA AND SYSTEMIC SYMPTOMS [None]
  - TOXIC SKIN ERUPTION [None]
